FAERS Safety Report 5046460-7 (Version None)
Quarter: 2006Q3

REPORT INFORMATION
  Report Type: 
  Country: None (occurrence: None)
  Receive Date: 20060710
  Receipt Date: 20060703
  Transmission Date: 20061208
  Serious: Yes (Other)
  Sender: FDA-Public Use
  Company Number: ES-GLAXOSMITHKLINE-B0430238A

PATIENT
  Age: 78 Year
  Sex: Male

DRUGS (1)
  1. AUGMENTIN '125' [Suspect]
     Dosage: 1000MG PER DAY
     Route: 048
     Dates: start: 20060601, end: 20060702

REACTIONS (2)
  - AMAUROSIS [None]
  - BLINDNESS [None]
